FAERS Safety Report 8125610-X (Version None)
Quarter: 2012Q1

REPORT INFORMATION
  Report Type: 
  Country: None (occurrence: None)
  Receive Date: 20120209
  Receipt Date: 20120207
  Transmission Date: 20120608
  Serious: Yes (Other)
  Sender: FDA-Public Use
  Company Number: JP-PFIZER INC-2011304952

PATIENT
  Age: 87 Year
  Sex: Male

DRUGS (6)
  1. LYRICA [Suspect]
     Dosage: 150 MG, 1X/DAY
     Route: 048
     Dates: start: 20111115, end: 20111122
  2. LYRICA [Suspect]
     Dosage: 75 MG, 2X/DAY
     Route: 048
     Dates: start: 20111107, end: 20111114
  3. DEPAS [Concomitant]
     Indication: MUSCULOSKELETAL PAIN
     Dosage: 0.5 MG, 3X/DAY
     Route: 048
     Dates: start: 20111107, end: 20111122
  4. LYRICA [Suspect]
     Indication: PAIN
     Dosage: UNK
     Route: 048
     Dates: start: 20110801
  5. LYRICA [Suspect]
     Indication: SPINAL COLUMN STENOSIS
     Dosage: 150 MG, DAILY
     Route: 048
     Dates: start: 20110901
  6. DEPAS [Concomitant]
     Indication: BACK PAIN

REACTIONS (1)
  - MUSCLE SPASMS [None]
